FAERS Safety Report 7536895-2 (Version None)
Quarter: 2011Q2

REPORT INFORMATION
  Report Type: 
  Country: None (occurrence: None)
  Receive Date: 20110609
  Receipt Date: 20110606
  Transmission Date: 20111010
  Serious: Yes (Hospitalization)
  Sender: FDA-Public Use
  Company Number: FR-ROCHE-780154

PATIENT
  Sex: Male
  Weight: 81 kg

DRUGS (7)
  1. RO 5190591 (ITMN-191) [Suspect]
     Dosage: LAST DATE OF DOSE PRIOR TO SAE: 21 MAY 2011
     Route: 048
     Dates: start: 20110208
  2. RIBAVIRIN [Suspect]
     Dosage: LAST DATE OF DOSE PRIOR TO SAE: 31 MAY 2011
     Route: 048
     Dates: start: 20110208
  3. SIBELIUM [Concomitant]
     Dosage: BEFORE THE TRIAL
  4. NORVIR [Suspect]
     Dosage: LAST DOSE PRIOR TO TREATMENT 31 MAY 2011.
     Route: 065
     Dates: start: 20110208
  5. ZOLMITRIPTAN [Concomitant]
  6. ACETAMINOPHEN [Concomitant]
     Dates: start: 20110208
  7. PEGINTERFERON ALFA-2A [Suspect]
     Dosage: LAST DATE OF DOSE PRIOR TO SAE: 28 MAY 2011
     Route: 058
     Dates: start: 20110208

REACTIONS (1)
  - DEPRESSION [None]
